FAERS Safety Report 12726608 (Version 1)
Quarter: 2016Q3

REPORT INFORMATION
  Report Type: Spontaneous
  Country: US (occurrence: US)
  Receive Date: 20160908
  Receipt Date: 20160908
  Transmission Date: 20161109
  Serious: Yes (Death)
  Sender: FDA-Public Use
  Company Number: US-LUNDBECK-DKLU2018858

PATIENT
  Age: 66 Year
  Sex: Male

DRUGS (2)
  1. NORTHERA [Suspect]
     Active Substance: DROXIDOPA
     Route: 048
     Dates: start: 20160527, end: 20160814
  2. NORTHERA [Suspect]
     Active Substance: DROXIDOPA
     Indication: NERVOUS SYSTEM DISORDER
     Route: 048
     Dates: start: 20160527, end: 20160802

REACTIONS (1)
  - Death [Fatal]

NARRATIVE: CASE EVENT DATE: 20160814
